FAERS Safety Report 22292747 (Version 1)
Quarter: 2023Q2

REPORT INFORMATION
  Report Type: Spontaneous
  Country: US (occurrence: US)
  Receive Date: 20230508
  Receipt Date: 20230508
  Transmission Date: 20230722
  Serious: No
  Sender: FDA-Public Use
  Company Number: US-GLAXOSMITHKLINE-USCH2023AMR019948

PATIENT
  Sex: Female

DRUGS (2)
  1. TERBINAFINE [Interacting]
     Active Substance: TERBINAFINE
     Indication: Nail infection
     Dosage: UNK
  2. CAPLYTA [Interacting]
     Active Substance: LUMATEPERONE
     Indication: Product used for unknown indication
     Dosage: UNK

REACTIONS (3)
  - Psychiatric symptom [Not Recovered/Not Resolved]
  - Disease recurrence [Not Recovered/Not Resolved]
  - Drug interaction [Unknown]
